FAERS Safety Report 18926339 (Version 2)
Quarter: 2021Q2

REPORT INFORMATION
  Report Type: Spontaneous
  Country: CA (occurrence: CA)
  Receive Date: 20210223
  Receipt Date: 20210429
  Transmission Date: 20210717
  Serious: Yes (Other)
  Sender: FDA-Public Use
  Company Number: CA-SA-2021SA060539

PATIENT
  Age: 72 Year
  Sex: Female

DRUGS (5)
  1. DUPIXENT [Suspect]
     Active Substance: DUPILUMAB
     Indication: DERMATITIS ATOPIC
     Dosage: UNK
     Dates: start: 201806, end: 202010
  2. DERMAVATE S [Concomitant]
  3. AMLODIPINE [Concomitant]
     Active Substance: AMLODIPINE BESYLATE
  4. METHOTREXATE. [Concomitant]
     Active Substance: METHOTREXATE
     Dosage: LOW DOSE
  5. BETADERM [Concomitant]
     Active Substance: BETAMETHASONE VALERATE

REACTIONS (8)
  - Dermatitis exfoliative generalised [Recovered/Resolved]
  - Pruritus [Recovering/Resolving]
  - Granuloma [Recovering/Resolving]
  - Rash papular [Recovering/Resolving]
  - Erythema [Recovering/Resolving]
  - Drug eruption [Unknown]
  - Lichen planus [Recovering/Resolving]
  - Drug hypersensitivity [Recovering/Resolving]

NARRATIVE: CASE EVENT DATE: 201806
